FAERS Safety Report 8420291-X (Version None)
Quarter: 2012Q2

REPORT INFORMATION
  Report Type: 
  Country: None (occurrence: None)
  Receive Date: 20120607
  Receipt Date: 20120523
  Transmission Date: 20120825
  Serious: Yes (Hospitalization, Other)
  Sender: FDA-Public Use
  Company Number: CHPA2012US011449

PATIENT
  Age: 76 Year
  Sex: Female

DRUGS (5)
  1. MAALOX ADV MAXIMUM STRENGTH ANTACID/ANTIGAS [Suspect]
     Dosage: A SWIG, EVERY NIGHT
     Route: 048
     Dates: start: 20090101, end: 20100101
  2. ALLEGRA [Concomitant]
     Dosage: UNK, UNK
  3. VITAMINS NOS [Concomitant]
     Dosage: UNK, UNK
  4. MAALOX ADV MAXIMUM STRENGTH ANTACID/ANTIGAS [Suspect]
     Indication: GASTROOESOPHAGEAL REFLUX DISEASE
     Dosage: 1-1 1/2 TSP, DAILY
     Route: 048
  5. ZYRTEC [Concomitant]
     Dosage: UNK, UNK

REACTIONS (8)
  - CIRCULATORY COLLAPSE [None]
  - WRONG TECHNIQUE IN DRUG USAGE PROCESS [None]
  - LIVER DISORDER [None]
  - INCORRECT DRUG ADMINISTRATION DURATION [None]
  - CONDITION AGGRAVATED [None]
  - CEREBROVASCULAR ACCIDENT [None]
  - ABDOMINAL DISTENSION [None]
  - UNDERDOSE [None]
